FAERS Safety Report 15299951 (Version 1)
Quarter: 2018Q3

REPORT INFORMATION
  Report Type: Spontaneous
  Country: US (occurrence: US)
  Receive Date: 20180821
  Receipt Date: 20180821
  Transmission Date: 20181010
  Serious: No
  Sender: FDA-Public Use
  Company Number: US-BAYER-2018-150622

PATIENT
  Age: 88 Year
  Sex: Female
  Weight: 46 kg

DRUGS (1)
  1. MIRALAX [Suspect]
     Active Substance: POLYETHYLENE GLYCOL 3350
     Indication: GASTROINTESTINAL DISORDER
     Dosage: ABOUT 1/3 DOSE DOSE
     Route: 048

REACTIONS (2)
  - Drug ineffective [Unknown]
  - Underdose [Unknown]
